FAERS Safety Report 9917603 (Version 1)
Quarter: 2014Q1

REPORT INFORMATION
  Report Type: Spontaneous
  Country: JP (occurrence: JP)
  Receive Date: 20140221
  Receipt Date: 20140221
  Transmission Date: 20141002
  Serious: Yes (Other)
  Sender: FDA-Public Use
  Company Number: JP-009507513-1402JPN009820

PATIENT
  Age: 8 Year
  Sex: Male

DRUGS (1)
  1. SINGULAIR TABLETS 10MG [Suspect]
     Dosage: 10 MG, QD
     Route: 048

REACTIONS (2)
  - Ileus paralytic [Unknown]
  - Prescribed overdose [Unknown]
